FAERS Safety Report 8235862-3 (Version None)
Quarter: 2012Q1

REPORT INFORMATION
  Report Type: 
  Country: None (occurrence: None)
  Receive Date: 20120326
  Receipt Date: 20120320
  Transmission Date: 20120608
  Serious: No
  Sender: FDA-Public Use
  Company Number: US-PFIZER INC-2012072858

PATIENT
  Sex: Female
  Weight: 58.957 kg

DRUGS (2)
  1. GABAPENTIN [Suspect]
     Indication: FIBROMYALGIA
     Dosage: UNK
     Route: 048
     Dates: start: 20111201, end: 20120201
  2. LYRICA [Suspect]
     Indication: FIBROMYALGIA
     Dosage: 25 MG, 2X/DAY
     Route: 048
     Dates: start: 20111101, end: 20111201

REACTIONS (8)
  - EATING DISORDER [None]
  - ABDOMINAL DISCOMFORT [None]
  - WEIGHT DECREASED [None]
  - CONSTIPATION [None]
  - DYSURIA [None]
  - DYSPEPSIA [None]
  - ABDOMINAL PAIN UPPER [None]
  - DRUG INEFFECTIVE [None]
